FAERS Safety Report 23657985 (Version 1)
Quarter: 2024Q1

REPORT INFORMATION
  Report Type: Spontaneous
  Country: US (occurrence: US)
  Receive Date: 20240321
  Receipt Date: 20240321
  Transmission Date: 20240410
  Serious: Yes (Other)
  Sender: FDA-Public Use
  Company Number: US-OPELLA-2024OHG007292

PATIENT
  Sex: Female

DRUGS (1)
  1. ACT TOTAL CARE DRY MOUTH ANTICAVITY MOUTH [Suspect]
     Active Substance: SODIUM FLUORIDE
     Indication: Product used for unknown indication

REACTIONS (3)
  - Burn oral cavity [Unknown]
  - Tongue dry [Unknown]
  - Product taste abnormal [Unknown]
